FAERS Safety Report 21638396 (Version 1)
Quarter: 2022Q4

REPORT INFORMATION
  Report Type: Spontaneous
  Country: FR (occurrence: FR)
  Receive Date: 20221124
  Receipt Date: 20221124
  Transmission Date: 20230113
  Serious: Yes (Hospitalization)
  Sender: FDA-Public Use
  Company Number: None

PATIENT
  Age: 71 Year
  Sex: Male
  Weight: 55 kg

DRUGS (5)
  1. BEVACIZUMAB [Suspect]
     Active Substance: BEVACIZUMAB
     Indication: Epithelioid mesothelioma
     Dosage: 825 MG
     Route: 042
     Dates: start: 20220804, end: 20220804
  2. CARBOPLATIN [Suspect]
     Active Substance: CARBOPLATIN
     Indication: Epithelioid mesothelioma
     Dosage: 600 MG, SINGLE
     Route: 042
     Dates: start: 20220804, end: 20220804
  3. OPDIVO [Suspect]
     Active Substance: NIVOLUMAB
     Indication: Epithelioid mesothelioma
     Dosage: 360 MG, EVERY 3 WEEKS
     Route: 042
     Dates: start: 20220209, end: 20220706
  4. ALIMTA [Suspect]
     Active Substance: PEMETREXED DISODIUM
     Indication: Epithelioid mesothelioma
     Dosage: 775 MG, SINGLE
     Route: 042
     Dates: start: 20220804, end: 20220804
  5. YERVOY [Suspect]
     Active Substance: IPILIMUMAB
     Indication: Epithelioid mesothelioma
     Dosage: 60 MG, EVERY 3 WEEKS
     Route: 042
     Dates: start: 20220209, end: 20220615

REACTIONS (1)
  - Organising pneumonia [Recovering/Resolving]

NARRATIVE: CASE EVENT DATE: 20220928
